FAERS Safety Report 11973152 (Version 3)
Quarter: 2016Q1

REPORT INFORMATION
  Report Type: Report from Study
  Country: US (occurrence: US)
  Receive Date: 20160128
  Receipt Date: 20160331
  Transmission Date: 20160526
  Serious: Yes (Death, Life-Threatening, Hospitalization, Other)
  Sender: FDA-Public Use
  Company Number: US-TAKEDA-2016TUS001374

PATIENT
  Age: 56 Year
  Sex: Female
  Weight: 55.78 kg

DRUGS (8)
  1. MULTIVITAMIN                       /07504101/ [Concomitant]
     Active Substance: VITAMINS
     Dosage: UNK
     Route: 048
  2. VITAMIN C [Concomitant]
     Active Substance: ASCORBIC ACID
     Dosage: UNK
     Route: 048
  3. POTASSIUM [Concomitant]
     Active Substance: POTASSIUM
  4. VITAMIN B12                        /07503801/ [Concomitant]
  5. VEDOLIZUMAB [Suspect]
     Active Substance: VEDOLIZUMAB
     Indication: COLITIS ULCERATIVE
     Dosage: 300 MG, UNK
     Route: 042
     Dates: start: 20150226, end: 20150409
  6. METHOTREXATE [Concomitant]
     Active Substance: METHOTREXATE
     Dosage: UNK
  7. LIALDA [Concomitant]
     Active Substance: MESALAMINE
     Dosage: UNK
  8. DICYCLOMINE                        /00068601/ [Concomitant]
     Active Substance: DICYCLOMINE HYDROCHLORIDE
     Dosage: UNK
     Route: 048

REACTIONS (10)
  - Shock [Not Recovered/Not Resolved]
  - Nausea [Unknown]
  - Colectomy total [Unknown]
  - Ileostomy [Unknown]
  - Pain [Unknown]
  - Cardiac arrest [Fatal]
  - Vomiting [Unknown]
  - Hypotension [Unknown]
  - White blood cell count increased [Unknown]
  - Pyrexia [Unknown]

NARRATIVE: CASE EVENT DATE: 20150507
